FAERS Safety Report 21262133 (Version 3)
Quarter: 2022Q4

REPORT INFORMATION
  Report Type: Report from Study
  Country: JP (occurrence: JP)
  Receive Date: 20220827
  Receipt Date: 20221007
  Transmission Date: 20230113
  Serious: No
  Sender: FDA-Public Use
  Company Number: JP-ABBVIE-22K-087-4477229-00

PATIENT
  Sex: Female

DRUGS (2)
  1. CARBIDOPA\LEVODOPA [Suspect]
     Active Substance: CARBIDOPA\LEVODOPA
     Indication: Parkinson^s disease
     Route: 050
     Dates: start: 20220525
  2. CARBIDOPA\LEVODOPA [Suspect]
     Active Substance: CARBIDOPA\LEVODOPA

REACTIONS (11)
  - Fatigue [Unknown]
  - Abdominal pain [Unknown]
  - Dizziness [Recovered/Resolved]
  - Gait disturbance [Unknown]
  - Asthenia [Unknown]
  - Stoma site discharge [Not Recovered/Not Resolved]
  - Stoma site inflammation [Unknown]
  - Stoma site haemorrhage [Unknown]
  - Dyskinesia [Unknown]
  - Stoma site pain [Unknown]
  - Malaise [Unknown]

NARRATIVE: CASE EVENT DATE: 20220101
